FAERS Safety Report 6228972-3 (Version None)
Quarter: 2009Q2

REPORT INFORMATION
  Report Type: 
  Country: None (occurrence: None)
  Receive Date: 20090611
  Receipt Date: 20090611
  Transmission Date: 20091009
  Serious: Yes (Other)
  Sender: FDA-Public Use
  Company Number: None

PATIENT
  Sex: Male
  Weight: 83 kg

DRUGS (1)
  1. LEVETIRACETAM [Suspect]
     Indication: EPILEPSY
     Dosage: 750 MG TABS 1 QAM/2 QHS PO
     Route: 048
     Dates: start: 20081101

REACTIONS (4)
  - ASTHENIA [None]
  - DIZZINESS [None]
  - TONGUE BITING [None]
  - TONIC CLONIC MOVEMENTS [None]
